FAERS Safety Report 7887597-4 (Version None)
Quarter: 2011Q4

REPORT INFORMATION
  Report Type: 
  Country: None (occurrence: None)
  Receive Date: 20111103
  Receipt Date: 20111024
  Transmission Date: 20120403
  Serious: No
  Sender: FDA-Public Use
  Company Number: US-BIOGENIDEC-2011BI040844

PATIENT
  Sex: Female

DRUGS (3)
  1. TYSABRI [Suspect]
     Indication: MULTIPLE SCLEROSIS
     Route: 042
     Dates: start: 20070706, end: 20081024
  2. TYSABRI [Suspect]
     Route: 042
     Dates: start: 20090318, end: 20090318
  3. TYSABRI [Suspect]
     Route: 042
     Dates: start: 20100414

REACTIONS (2)
  - ASTHENIA [None]
  - HYPOTONIA [None]
